FAERS Safety Report 9206608 (Version 1)
Quarter: 2013Q2

REPORT INFORMATION
  Report Type: Spontaneous
  Country: BR (occurrence: BR)
  Receive Date: 20130403
  Receipt Date: 20130403
  Transmission Date: 20140414
  Serious: Yes (Other)
  Sender: FDA-Public Use
  Company Number: BR-AMGEN-BRASP2013022381

PATIENT
  Age: 58 Year
  Sex: Female
  Weight: 89 kg

DRUGS (5)
  1. ENBREL [Suspect]
     Indication: RHEUMATOID ARTHRITIS
     Dosage: 50 MG, ONCE WEEKLY
     Route: 058
     Dates: start: 201212, end: 201301
  2. LANTUS [Concomitant]
     Dosage: 55 IU, 1X/DAY
     Route: 058
  3. INSULIN [Concomitant]
     Dosage: 6 IU, 3X/DAY
     Route: 058
  4. JANUMET                            /06535301/ [Concomitant]
     Dosage: [500 MG METFORMNIN] / [50 MG SITAGLIPTIN] AT 1 TABLET 2X/DAY
     Route: 048
  5. DIOVAN [Concomitant]
     Dosage: 1 TABLET OF STRENGTH 320 MG 1X/DAY
     Route: 048

REACTIONS (2)
  - Nephrolithiasis [Unknown]
  - Urinary tract infection [Unknown]
